FAERS Safety Report 9448993 (Version 1)
Quarter: 2013Q3

REPORT INFORMATION
  Report Type: Spontaneous
  Country: FR (occurrence: None)
  Receive Date: 20130806
  Receipt Date: 20130806
  Transmission Date: 20140515
  Serious: Yes (Life-Threatening, Hospitalization)
  Sender: FDA-Public Use
  Company Number: DSM-2013-00696

PATIENT
  Age: 75 Year
  Sex: Female
  Weight: 58 kg

DRUGS (11)
  1. COOLMETEC [Suspect]
     Indication: HYPERTENSION
     Dosage: 1 DOSE FORMS
     Route: 048
     Dates: end: 201301
  2. ALPRESS [Suspect]
     Dosage: 1 DOSAGE FORMS
     Route: 048
     Dates: start: 201302, end: 2013
  3. SPASFON [Concomitant]
  4. INEXIUM [Concomitant]
  5. NSAIDS (NOS) [Concomitant]
  6. SPECIAFOLDINE [Concomitant]
  7. CACIT D3 [Concomitant]
  8. A313 [Concomitant]
  9. TOCO [Concomitant]
  10. UVEDOSE [Concomitant]
  11. IXPRIM [Concomitant]

REACTIONS (9)
  - Renal failure acute [None]
  - Haemodialysis [None]
  - Tachycardia [None]
  - Leukocytosis [None]
  - Hypokalaemia [None]
  - Acidosis [None]
  - Colitis microscopic [None]
  - Benign small intestinal neoplasm [None]
  - Altered state of consciousness [None]
